FAERS Safety Report 17570182 (Version 2)
Quarter: 2020Q2

REPORT INFORMATION
  Report Type: Spontaneous
  Country: US (occurrence: US)
  Receive Date: 20200323
  Receipt Date: 20200403
  Transmission Date: 20200713
  Serious: Yes (Other)
  Sender: FDA-Public Use
  Company Number: US-009507513-2003USA007625

PATIENT
  Age: 54 Year
  Sex: Male

DRUGS (1)
  1. BELSOMRA [Suspect]
     Active Substance: SUVOREXANT
     Indication: INSOMNIA
     Dosage: 20 MG TAKEN DAILY
     Route: 048
     Dates: start: 20190118, end: 20200127

REACTIONS (4)
  - Inability to afford medication [Not Recovered/Not Resolved]
  - Insomnia [Unknown]
  - Product dose omission [Unknown]
  - Suicidal ideation [Unknown]

NARRATIVE: CASE EVENT DATE: 2020
